FAERS Safety Report 11422567 (Version 1)
Quarter: 2015Q3

REPORT INFORMATION
  Report Type: Spontaneous
  Country: US (occurrence: None)
  Receive Date: 20150826
  Receipt Date: 20150826
  Transmission Date: 20151125
  Serious: Yes (Death)
  Sender: FDA-Public Use
  Company Number: None

PATIENT
  Age: 1 Day
  Sex: Male
  Weight: 1.04 kg

DRUGS (2)
  1. PRENATAL VITAMIN [Concomitant]
     Active Substance: VITAMINS
  2. ZOFRAN [Suspect]
     Active Substance: ONDANSETRON HYDROCHLORIDE
     Indication: VOMITING IN PREGNANCY
     Route: 048
     Dates: end: 20141230

REACTIONS (6)
  - Foetal death [None]
  - Congenital intestinal malformation [None]
  - Abdominal wall disorder [None]
  - Maternal drugs affecting foetus [None]
  - Talipes [None]
  - Joint contracture [None]

NARRATIVE: CASE EVENT DATE: 20141230
